FAERS Safety Report 10415495 (Version 1)
Quarter: 2014Q2

REPORT INFORMATION
  Report Type: Spontaneous
  Country: US (occurrence: None)
  Receive Date: 20140604
  Receipt Date: 20140604
  Transmission Date: 20141212
  Serious: No
  Sender: FDA-Public Use
  Company Number: 163-POMAL-14023136

PATIENT
  Age: 81 Year
  Sex: Male
  Weight: 81.2 kg

DRUGS (9)
  1. POMALYST (POMALIDOMIDE) (4 MILLIGRAM, CAPSULES) [Suspect]
     Indication: PLASMA CELL MYELOMA
     Dosage: 2 MG, 1 IN 2 D, PO
     Route: 048
     Dates: start: 20131205, end: 2014
  2. SULFAMETH/TMP (BACTRIM) [Concomitant]
  3. ACYCLOVIR (ACICLOVIR) (TABLETS) [Concomitant]
  4. DEXAMETHASONE (TABLETS) [Concomitant]
  5. OMEPRAZOLE (TABLETS) [Concomitant]
  6. FOLIC ACID (TABLETS) [Concomitant]
  7. COUMADIN (WARFARIN SODIUM) (TABLETS) [Concomitant]
  8. OXYCODONE (TABLETS) [Concomitant]
  9. TYLENOL (PARACETAMOL) (ABLETS) [Concomitant]

REACTIONS (4)
  - Disturbance in attention [None]
  - Apathy [None]
  - Neuropathy peripheral [None]
  - Oedema [None]
